FAERS Safety Report 13226405 (Version 4)
Quarter: 2017Q2

REPORT INFORMATION
  Report Type: Spontaneous
  Country: US (occurrence: US)
  Receive Date: 20170213
  Receipt Date: 20170428
  Transmission Date: 20170830
  Serious: Yes (Other)
  Sender: FDA-Public Use
  Company Number: US-PFIZER INC-2017063554

PATIENT
  Age: 67 Year
  Sex: Female
  Weight: 64 kg

DRUGS (5)
  1. TRIAMCINOLONE [Concomitant]
     Active Substance: TRIAMCINOLONE
     Indication: LICHEN SCLEROSUS
     Dosage: APPLIED EXTERNALLY 0.025MG AT LEAST TWICE PER WEEK AS NEEDED
     Route: 061
     Dates: start: 2014
  2. PREMARIN [Suspect]
     Active Substance: ESTROGENS, CONJUGATED
     Dosage: 1 G, UNK, (EVERY 4 DAYS)
     Dates: start: 2009
  3. PREMARIN [Suspect]
     Active Substance: ESTROGENS, CONJUGATED
     Indication: HORMONE REPLACEMENT THERAPY
     Dosage: 1 G, 2X/WEEK
     Route: 067
  4. PREMARIN [Suspect]
     Active Substance: ESTROGENS, CONJUGATED
     Indication: VULVOVAGINAL DISCOMFORT
     Dosage: UNK (0.625)
  5. TESTOSTERONE. [Concomitant]
     Active Substance: TESTOSTERONE
     Indication: LICHEN SCLEROSUS
     Dosage: APPLIED EXTERNALLY AS NEEDED
     Route: 061
     Dates: start: 2009

REACTIONS (2)
  - Vulvovaginal mycotic infection [Recovered/Resolved]
  - Cystitis [Recovered/Resolved]

NARRATIVE: CASE EVENT DATE: 201607
